FAERS Safety Report 6787500-4 (Version None)
Quarter: 2010Q2

REPORT INFORMATION
  Report Type: 
  Country: None (occurrence: None)
  Receive Date: 20100623
  Receipt Date: 20070928
  Transmission Date: 20101027
  Serious: Yes (Other)
  Sender: FDA-Public Use
  Company Number: US-PFIZER INC-2007035876

PATIENT

DRUGS (1)
  1. SUTENT [Suspect]
     Indication: GASTROINTESTINAL STROMAL TUMOUR
     Dosage: DAILY 4 WEEKS ON AND 2 WEEKS OFF
     Route: 048
     Dates: start: 20060905, end: 20070424

REACTIONS (1)
  - NO ADVERSE EVENT [None]
